FAERS Safety Report 23305465 (Version 1)
Quarter: 2023Q4

REPORT INFORMATION
  Report Type: Spontaneous
  Country: FR (occurrence: FR)
  Receive Date: 20231218
  Receipt Date: 20231218
  Transmission Date: 20240109
  Serious: Yes (Hospitalization)
  Sender: FDA-Public Use
  Company Number: None

PATIENT
  Age: 39 Year

DRUGS (3)
  1. QUETIAPINE [Suspect]
     Active Substance: QUETIAPINE
     Route: 065
  2. CODEINE [Suspect]
     Active Substance: CODEINE
     Route: 065
  3. VALIUM [Suspect]
     Active Substance: DIAZEPAM
     Dosage: 100MG/J
     Route: 048

REACTIONS (4)
  - Drug dependence [Recovering/Resolving]
  - Memory impairment [Recovering/Resolving]
  - Somnolence [Recovered/Resolved]
  - Dizziness [Recovered/Resolved]
